FAERS Safety Report 25812192 (Version 2)
Quarter: 2025Q4

REPORT INFORMATION
  Report Type: Spontaneous
  Country: EU (occurrence: EU)
  Receive Date: 20250917
  Receipt Date: 20251008
  Transmission Date: 20260118
  Serious: Yes (Other)
  Sender: TEVA
  Company Number: EU-TEVA-VS-3371387

PATIENT
  Age: 60 Year
  Sex: Female

DRUGS (2)
  1. ERLOTINIB [Suspect]
     Active Substance: ERLOTINIB
     Indication: Lung squamous cell carcinoma metastatic
     Route: 065
  2. OSIMERTINIB [Suspect]
     Active Substance: OSIMERTINIB
     Indication: Lung squamous cell carcinoma metastatic
     Route: 065

REACTIONS (3)
  - Drug eruption [Unknown]
  - Drug eruption [Unknown]
  - Drug ineffective [Unknown]
